FAERS Safety Report 5483416-4 (Version None)
Quarter: 2007Q4

REPORT INFORMATION
  Report Type: 
  Country: None (occurrence: None)
  Receive Date: 20071012
  Receipt Date: 20071002
  Transmission Date: 20080405
  Serious: Yes (Other)
  Sender: FDA-Public Use
  Company Number: US-BAYER-200713171BCC

PATIENT
  Age: 66 Year
  Sex: Male

DRUGS (6)
  1. ASPIRIN [Suspect]
     Indication: DRUG USE FOR UNKNOWN INDICATION
     Dosage: TOTAL DAILY DOSE: 81 MG  UNIT DOSE: 81 MG
     Route: 048
  2. PLAVIX [Suspect]
     Indication: TRANSIENT ISCHAEMIC ATTACK
     Dosage: TOTAL DAILY DOSE: 75 MG  UNIT DOSE: 75 MG
     Route: 048
     Dates: start: 20061201, end: 20070824
  3. PLAVIX [Suspect]
     Dosage: TOTAL DAILY DOSE: 150 MG  UNIT DOSE: 75 MG
     Route: 048
     Dates: start: 20070824
  4. AGGRENOX [Concomitant]
  5. ZIAC [Concomitant]
  6. METFORMIN HCL [Concomitant]

REACTIONS (2)
  - THROMBOSIS IN DEVICE [None]
  - TRANSIENT ISCHAEMIC ATTACK [None]
